FAERS Safety Report 18267837 (Version 1)
Quarter: 2020Q3

REPORT INFORMATION
  Report Type: Spontaneous
  Country: US (occurrence: US)
  Receive Date: 20200915
  Receipt Date: 20200915
  Transmission Date: 20201103
  Serious: No
  Sender: FDA-Public Use
  Company Number: US-ASTELLAS-2020US012265

PATIENT
  Age: 73 Year
  Sex: Male

DRUGS (3)
  1. XTANDI [Suspect]
     Active Substance: ENZALUTAMIDE
     Route: 048
     Dates: start: 202001
  2. XTANDI [Suspect]
     Active Substance: ENZALUTAMIDE
     Route: 048
     Dates: start: 202003
  3. XTANDI [Suspect]
     Active Substance: ENZALUTAMIDE
     Indication: PROSTATE CANCER
     Route: 048
     Dates: start: 2019, end: 201912

REACTIONS (6)
  - Bone pain [Recovering/Resolving]
  - Product colour issue [Unknown]
  - Poor quality product administered [Unknown]
  - Fall [Recovering/Resolving]
  - Gait disturbance [Recovering/Resolving]
  - Product odour abnormal [Unknown]

NARRATIVE: CASE EVENT DATE: 201909
